FAERS Safety Report 23426413 (Version 1)
Quarter: 2024Q1

REPORT INFORMATION
  Report Type: Spontaneous
  Country: DE (occurrence: DE)
  Receive Date: 20240122
  Receipt Date: 20240122
  Transmission Date: 20240409
  Serious: Yes (Congenital Anomaly)
  Sender: FDA-Public Use
  Company Number: DE-EMBRYOTOX-202208173

PATIENT
  Age: 1 Day
  Sex: Female
  Weight: 3.73 kg

DRUGS (3)
  1. VENLAFAXINE [Suspect]
     Active Substance: VENLAFAXINE HYDROCHLORIDE
     Indication: Product used for unknown indication
     Dosage: 150 [MG/D ]
     Route: 064
     Dates: start: 20220529, end: 20220726
  2. CHLORPROTHIXEN-NEURAXPHARM [Concomitant]
     Indication: Borderline personality disorder
     Dosage: 15 [MG/D ]
     Route: 064
  3. INSULIN NOS [Concomitant]
     Active Substance: INSULIN NOS
     Indication: Gestational diabetes

REACTIONS (2)
  - Ventricular septal defect [Unknown]
  - Foetal exposure during pregnancy [Unknown]

NARRATIVE: CASE EVENT DATE: 20230201
